FAERS Safety Report 7901694-6 (Version None)
Quarter: 2011Q4

REPORT INFORMATION
  Report Type: 
  Country: None (occurrence: None)
  Receive Date: 20111108
  Receipt Date: 20111030
  Transmission Date: 20120403
  Serious: Yes (Life-Threatening)
  Sender: FDA-Public Use
  Company Number: NZ-B.I. PHARMACEUTICALS,INC./RIDGEFIELD-2011-AU-01725AU

PATIENT
  Sex: Female
  Weight: 52 kg

DRUGS (5)
  1. QUINAPRIL [Concomitant]
     Dosage: 120 MG
  2. ISOSORBIDE DINITRATE [Concomitant]
     Dosage: 120 MG
  3. PRADAXA [Suspect]
     Dosage: 220 MG
     Dates: start: 20110725, end: 20110823
  4. FUROSEMIDE [Concomitant]
     Dosage: 120 MG
  5. METOPROLOL [Concomitant]
     Dosage: 190 MG

REACTIONS (2)
  - HAEMOPTYSIS [None]
  - DYSPNOEA [None]
